FAERS Safety Report 8780405 (Version 1)
Quarter: 2012Q4

REPORT INFORMATION
  Report Type: Spontaneous
  Country: US (occurrence: None)
  Receive Date: 20120905
  Receipt Date: 20120905
  Transmission Date: 20130627
  Serious: Yes (Hospitalization)
  Sender: FDA-Public Use
  Company Number: None

PATIENT
  Age: 87 Year
  Weight: 63.96 kg

DRUGS (7)
  1. RANIBIZUMAB [Suspect]
     Dosage: 0.50/2.0 mg
     Dates: start: 20101008, end: 20120612
  2. ASPIRIN 81 MG [Concomitant]
  3. SYNTHROID 50 MG [Concomitant]
  4. METOPROLOL 50 MG [Concomitant]
  5. LIPITOR 10 MG [Concomitant]
  6. INSULIN [Concomitant]
  7. FOSAMAX [Concomitant]

REACTIONS (2)
  - Pneumonia [None]
  - Oedema peripheral [None]
